FAERS Safety Report 5657324-X (Version None)
Quarter: 2008Q1

REPORT INFORMATION
  Report Type: 
  Country: None (occurrence: None)
  Receive Date: 20080310
  Receipt Date: 20080229
  Transmission Date: 20080703
  Serious: Yes (Other)
  Sender: FDA-Public Use
  Company Number: PHHY2008BR02486

PATIENT

DRUGS (1)
  1. FORASEQ [Suspect]

REACTIONS (1)
  - CARDIAC PACEMAKER INSERTION [None]
